FAERS Safety Report 18897937 (Version 1)
Quarter: 2021Q1

REPORT INFORMATION
  Report Type: Spontaneous
  Country: US (occurrence: US)
  Receive Date: 20210213
  Receipt Date: 20210213
  Transmission Date: 20210420
  Serious: Yes (Hospitalization)
  Sender: FDA-Public Use
  Company Number: None

PATIENT
  Age: 6 Year
  Sex: Male

DRUGS (1)
  1. AFINITOR DISPERZ [Suspect]
     Active Substance: EVEROLIMUS
     Dosage: DATE: 01?SEP?2021
     Route: 048

REACTIONS (1)
  - Erythema elevatum diutinum [None]

NARRATIVE: CASE EVENT DATE: 20210201
